FAERS Safety Report 6266646-3 (Version None)
Quarter: 2009Q3

REPORT INFORMATION
  Report Type: 
  Country: None (occurrence: None)
  Receive Date: 20090710
  Receipt Date: 20090701
  Transmission Date: 20100115
  Serious: Yes (Hospitalization)
  Sender: FDA-Public Use
  Company Number: 2009008041

PATIENT
  Age: 53 Year
  Sex: Female
  Weight: 111.1313 kg

DRUGS (26)
  1. PROVIGIL [Suspect]
     Indication: NARCOLEPSY
     Dosage: 200 MG (200 MG, 1 IN 1 D),ORAL; 300 MG (300 MG,L IN 1 D),ORAL; 400 G (200 MG,2 IN 1 D),ORAL
     Route: 048
     Dates: start: 20071121, end: 20080101
  2. PROVIGIL [Suspect]
     Indication: SLEEP APNOEA SYNDROME
     Dosage: 200 MG (200 MG, 1 IN 1 D),ORAL; 300 MG (300 MG,L IN 1 D),ORAL; 400 G (200 MG,2 IN 1 D),ORAL
     Route: 048
     Dates: start: 20071121, end: 20080101
  3. PROVIGIL [Suspect]
     Indication: SOMNOLENCE
     Dosage: 200 MG (200 MG, 1 IN 1 D),ORAL; 300 MG (300 MG,L IN 1 D),ORAL; 400 G (200 MG,2 IN 1 D),ORAL
     Route: 048
     Dates: start: 20071121, end: 20080101
  4. PROVIGIL [Suspect]
     Indication: NARCOLEPSY
     Dosage: 200 MG (200 MG, 1 IN 1 D),ORAL; 300 MG (300 MG,L IN 1 D),ORAL; 400 G (200 MG,2 IN 1 D),ORAL
     Route: 048
     Dates: start: 20080101, end: 20090301
  5. PROVIGIL [Suspect]
     Indication: SLEEP APNOEA SYNDROME
     Dosage: 200 MG (200 MG, 1 IN 1 D),ORAL; 300 MG (300 MG,L IN 1 D),ORAL; 400 G (200 MG,2 IN 1 D),ORAL
     Route: 048
     Dates: start: 20080101, end: 20090301
  6. PROVIGIL [Suspect]
     Indication: SOMNOLENCE
     Dosage: 200 MG (200 MG, 1 IN 1 D),ORAL; 300 MG (300 MG,L IN 1 D),ORAL; 400 G (200 MG,2 IN 1 D),ORAL
     Route: 048
     Dates: start: 20080101, end: 20090301
  7. PROVIGIL [Suspect]
     Indication: NARCOLEPSY
     Dosage: 200 MG (200 MG, 1 IN 1 D),ORAL; 300 MG (300 MG,L IN 1 D),ORAL; 400 G (200 MG,2 IN 1 D),ORAL
     Route: 048
     Dates: start: 20090301
  8. PROVIGIL [Suspect]
     Indication: SLEEP APNOEA SYNDROME
     Dosage: 200 MG (200 MG, 1 IN 1 D),ORAL; 300 MG (300 MG,L IN 1 D),ORAL; 400 G (200 MG,2 IN 1 D),ORAL
     Route: 048
     Dates: start: 20090301
  9. PROVIGIL [Suspect]
     Indication: SOMNOLENCE
     Dosage: 200 MG (200 MG, 1 IN 1 D),ORAL; 300 MG (300 MG,L IN 1 D),ORAL; 400 G (200 MG,2 IN 1 D),ORAL
     Route: 048
     Dates: start: 20090301
  10. LYRICA [Concomitant]
  11. AMOXICILLIN [Concomitant]
  12. SKELAXIN [Concomitant]
  13. CYMBALTA [Concomitant]
  14. BONIVA [Concomitant]
  15. LEVOTHYROXINE SODIUM [Concomitant]
  16. VICODIN [Concomitant]
  17. WELCHOL [Concomitant]
  18. BENTYL [Concomitant]
  19. TRAMADOL HCL [Concomitant]
  20. HYDROCHLOROTHIAZIDE [Concomitant]
  21. VITAMIN D [Concomitant]
  22. CALCIUM CITRATE [Concomitant]
  23. FLEXERIL [Concomitant]
  24. MULTIVITAMIN (ERGOCALCIFEROL, ASCORBIC ACID, PYRIDOXINE HYDROCHLORIDE, [Concomitant]
  25. ACETAMINOPHEN [Concomitant]
  26. COQ-10 (UBIDECARENONE) [Concomitant]

REACTIONS (7)
  - CELLULITIS [None]
  - PAIN [None]
  - RASH ERYTHEMATOUS [None]
  - RASH PRURITIC [None]
  - SKIN EXFOLIATION [None]
  - SOMNOLENCE [None]
  - URTICARIA [None]
